FAERS Safety Report 23574953 (Version 2)
Quarter: 2025Q1

REPORT INFORMATION
  Report Type: Spontaneous
  Country: US (occurrence: US)
  Receive Date: 20240228
  Receipt Date: 20250127
  Transmission Date: 20250409
  Serious: No
  Sender: SANOFI AVENTIS
  Company Number: US-SA-SAC20240226000332

PATIENT
  Sex: Male
  Weight: 26.308 kg

DRUGS (3)
  1. DUPIXENT [Suspect]
     Active Substance: DUPILUMAB
     Indication: Dermatitis atopic
     Dosage: 300 MG, Q4W
     Route: 058
     Dates: start: 20231121
  2. FISH OIL [Concomitant]
     Active Substance: FISH OIL
  3. HERBALS\TURMERIC [Concomitant]
     Active Substance: HERBALS\TURMERIC

REACTIONS (4)
  - Dermatitis atopic [Unknown]
  - Erythema [Unknown]
  - Therapeutic response shortened [Unknown]
  - Rash [Not Recovered/Not Resolved]
